FAERS Safety Report 5731632-6 (Version None)
Quarter: 2008Q2

REPORT INFORMATION
  Report Type: 
  Country: None (occurrence: None)
  Receive Date: 20080508
  Receipt Date: 20080429
  Transmission Date: 20081010
  Serious: Yes (Other)
  Sender: FDA-Public Use
  Company Number: PHHY2008CA07033

PATIENT
  Age: 86 Year
  Sex: Female

DRUGS (4)
  1. DIOVAN [Suspect]
     Indication: HYPERTENSION
     Dosage: 160 MG, QD
     Route: 048
     Dates: start: 20080101
  2. SYNTHROID [Concomitant]
  3. METOPROLOL TARTRATE [Concomitant]
  4. SENNOSIDE [Concomitant]

REACTIONS (6)
  - ABNORMAL BEHAVIOUR [None]
  - EMOTIONAL DISORDER [None]
  - HALLUCINATION [None]
  - MUSCULAR WEAKNESS [None]
  - SYNCOPE [None]
  - URINARY TRACT INFECTION [None]
